FAERS Safety Report 5774853-9 (Version None)
Quarter: 2008Q2

REPORT INFORMATION
  Report Type: 
  Country: None (occurrence: None)
  Receive Date: 20080612
  Receipt Date: 20080530
  Transmission Date: 20081010
  Serious: Yes (Other)
  Sender: FDA-Public Use
  Company Number: RENA-1000129

PATIENT
  Age: 62 Year
  Sex: Female

DRUGS (2)
  1. RENAGEL [Suspect]
     Indication: HYPERPHOSPHATAEMIA
     Dosage: ORAL
     Route: 048
  2. CLOPIDOGREL [Concomitant]

REACTIONS (10)
  - CONSTIPATION [None]
  - DIZZINESS [None]
  - FAECES HARD [None]
  - HAEMOGLOBIN DECREASED [None]
  - HYPOTENSION [None]
  - INFLAMMATION [None]
  - RECTAL HAEMORRHAGE [None]
  - RECTAL ULCER [None]
  - TACHYCARDIA [None]
  - UNEVALUABLE EVENT [None]
